FAERS Safety Report 9528172 (Version 3)
Quarter: 2013Q4

REPORT INFORMATION
  Report Type: Spontaneous
  Country: GB (occurrence: None)
  Receive Date: 20130913
  Receipt Date: 20131009
  Transmission Date: 20140711
  Serious: Yes (Other)
  Sender: FDA-Public Use
  Company Number: AUR-APL-2013-07536

PATIENT
  Age: 66 Year
  Sex: Female
  Weight: 165 kg

DRUGS (1)
  1. RAMIPRIL [Suspect]
     Indication: PRODUCT USED FOR UNKNOWN INDICATION

REACTIONS (9)
  - Joint swelling [None]
  - Blood pressure increased [None]
  - Choking [None]
  - Balance disorder [None]
  - Vision blurred [None]
  - Tongue ulceration [None]
  - Depressed mood [None]
  - Palpitations [None]
  - Headache [None]
